FAERS Safety Report 19667049 (Version 2)
Quarter: 2021Q3

REPORT INFORMATION
  Report Type: Spontaneous
  Country: US (occurrence: US)
  Receive Date: 20210806
  Receipt Date: 20210823
  Transmission Date: 20211014
  Serious: No
  Sender: FDA-Public Use
  Company Number: US-APOTEX-2021AP017769

PATIENT
  Sex: Male

DRUGS (1)
  1. GUANFACINE EXTENDED RELEASE TABLET [Suspect]
     Active Substance: GUANFACINE
     Indication: PRODUCT USED FOR UNKNOWN INDICATION
     Dosage: 1 DOSAGE FORM, Q.AM
     Route: 065

REACTIONS (3)
  - Adverse drug reaction [Not Recovered/Not Resolved]
  - Product substitution issue [Unknown]
  - Therapeutic response shortened [Unknown]
